FAERS Safety Report 19619523 (Version 1)
Quarter: 2021Q3

REPORT INFORMATION
  Report Type: Spontaneous
  Country: US (occurrence: US)
  Receive Date: 20210728
  Receipt Date: 20210728
  Transmission Date: 20211014
  Serious: No
  Sender: FDA-Public Use
  Company Number: US-ROCHE-2707478

PATIENT
  Sex: Female

DRUGS (5)
  1. XELODA [Suspect]
     Active Substance: CAPECITABINE
     Dosage: 7 DAYS ON 7 DAYS OFF
     Route: 065
  2. XANAX [Concomitant]
     Active Substance: ALPRAZOLAM
  3. TUKYSA [Suspect]
     Active Substance: TUCATINIB
     Indication: BREAST CANCER FEMALE
     Dosage: 300 MG 6 TABS EVERY MORNING AND NIGHT
     Route: 065
     Dates: start: 20200817
  4. TRAZODONE [Suspect]
     Active Substance: TRAZODONE HYDROCHLORIDE
     Indication: INSOMNIA
     Route: 065
  5. XELODA [Suspect]
     Active Substance: CAPECITABINE
     Indication: PRODUCT USED FOR UNKNOWN INDICATION
     Dosage: 14 DAYS ON 7 DAYS OFF
     Route: 065

REACTIONS (6)
  - Nausea [Unknown]
  - Palmar-plantar erythrodysaesthesia syndrome [Not Recovered/Not Resolved]
  - Initial insomnia [Unknown]
  - Fatigue [Unknown]
  - Erythema [Unknown]
  - Restless legs syndrome [Unknown]
